FAERS Safety Report 13523960 (Version 1)
Quarter: 2017Q2

REPORT INFORMATION
  Report Type: Spontaneous
  Country: US (occurrence: US)
  Receive Date: 20170508
  Receipt Date: 20170508
  Transmission Date: 20170830
  Serious: No
  Sender: FDA-Public Use
  Company Number: US-VIFOR (INTERNATIONAL) INC.-VIT-2017-00736

PATIENT
  Sex: Male

DRUGS (3)
  1. VELTASSA [Suspect]
     Active Substance: PATIROMER
     Indication: URINE PHOSPHORUS ABNORMAL
     Route: 048
     Dates: start: 2017
  2. RENVELA [Concomitant]
     Active Substance: SEVELAMER CARBONATE
  3. VELTASSA [Suspect]
     Active Substance: PATIROMER
     Indication: BLOOD POTASSIUM ABNORMAL
     Route: 048
     Dates: start: 20170112

REACTIONS (5)
  - Faeces soft [Unknown]
  - Anal incontinence [Unknown]
  - Product solubility abnormal [Unknown]
  - Faeces hard [Not Recovered/Not Resolved]
  - Inappropriate schedule of drug administration [Unknown]

NARRATIVE: CASE EVENT DATE: 2017
